FAERS Safety Report 9672000 (Version 1)
Quarter: 2013Q4

REPORT INFORMATION
  Report Type: Spontaneous
  Country: CA (occurrence: CA)
  Receive Date: 20131106
  Receipt Date: 20131106
  Transmission Date: 20140711
  Serious: Yes (Other)
  Sender: FDA-Public Use
  Company Number: CA-TEVA-442885USA

PATIENT
  Age: 51 Year
  Sex: Female
  Weight: 97 kg

DRUGS (1)
  1. TEVA-FENOFIBRATE [Suspect]
     Dosage: 72.5 MILLIGRAM DAILY;
     Route: 048

REACTIONS (1)
  - International normalised ratio fluctuation [Unknown]
